FAERS Safety Report 12197745 (Version 9)
Quarter: 2016Q2

REPORT INFORMATION
  Report Type: Spontaneous
  Country: GB (occurrence: GB)
  Receive Date: 20160322
  Receipt Date: 20160627
  Transmission Date: 20160815
  Serious: Yes (Hospitalization)
  Sender: FDA-Public Use
  Company Number: GB-ACCORD-038905

PATIENT
  Age: 46 Year
  Sex: Female

DRUGS (10)
  1. CYCLOPHOSPHAMIDE/CYCLOPHOSPHAMIDE MONOHYDRATE [Suspect]
     Active Substance: CYCLOPHOSPHAMIDE
     Indication: BREAST CANCER
  2. METOCLOPRAMIDE. [Concomitant]
     Active Substance: METOCLOPRAMIDE
  3. FLUCONAZOLE. [Concomitant]
     Active Substance: FLUCONAZOLE
  4. DOMPERIDONE [Concomitant]
     Active Substance: DOMPERIDONE
  5. FLUOROURACIL. [Suspect]
     Active Substance: FLUOROURACIL
     Indication: BREAST CANCER
  6. EMEND [Suspect]
     Active Substance: APREPITANT
     Indication: BREAST CANCER
     Route: 048
  7. NEULASTA [Suspect]
     Active Substance: PEGFILGRASTIM
     Indication: BREAST CANCER
     Route: 058
  8. TAXOTERE [Suspect]
     Active Substance: DOCETAXEL
     Indication: BREAST CANCER
  9. EPIRUBICIN [Suspect]
     Active Substance: EPIRUBICIN
     Indication: BREAST CANCER
  10. DEXAMETHASONE. [Concomitant]
     Active Substance: DEXAMETHASONE

REACTIONS (31)
  - Sputum discoloured [Unknown]
  - Alopecia [Recovered/Resolved]
  - Constipation [Unknown]
  - Fatigue [Unknown]
  - Increased appetite [Unknown]
  - Dry mouth [Unknown]
  - Oral candidiasis [Unknown]
  - Insomnia [Not Recovered/Not Resolved]
  - Adverse event [Unknown]
  - Decreased appetite [Unknown]
  - Allodynia [Unknown]
  - Paranasal sinus discomfort [Unknown]
  - Dry skin [Unknown]
  - Arthralgia [Recovering/Resolving]
  - Drug hypersensitivity [None]
  - Nasopharyngitis [Not Recovered/Not Resolved]
  - Sinus headache [Unknown]
  - Hepatic function abnormal [Not Recovered/Not Resolved]
  - Oropharyngeal pain [Unknown]
  - Dyspepsia [Unknown]
  - Muscular weakness [Unknown]
  - Weight decreased [Unknown]
  - Catheter site related reaction [Not Recovered/Not Resolved]
  - Back pain [Unknown]
  - Oral pain [Unknown]
  - Diarrhoea [Recovered/Resolved]
  - Pain [Recovered/Resolved]
  - Pyrexia [Recovered/Resolved]
  - Irritability [Unknown]
  - Abdominal pain upper [Unknown]
  - Rash [Unknown]

NARRATIVE: CASE EVENT DATE: 2016
